FAERS Safety Report 14772331 (Version 3)
Quarter: 2018Q2

REPORT INFORMATION
  Report Type: Report from Study
  Country: US (occurrence: US)
  Receive Date: 20180418
  Receipt Date: 20180614
  Transmission Date: 20180711
  Serious: Yes (Hospitalization, Other)
  Sender: FDA-Public Use
  Company Number: US-GILEAD-2018-0333432

PATIENT
  Age: 65 Year
  Sex: Female

DRUGS (26)
  1. ALLOPURINOL. [Concomitant]
     Active Substance: ALLOPURINOL
  2. QUINAPRIL. [Concomitant]
     Active Substance: QUINAPRIL
  3. JANUVIA [Concomitant]
     Active Substance: SITAGLIPTIN PHOSPHATE
  4. ASTELIN                            /00085801/ [Concomitant]
     Active Substance: AZELASTINE HYDROCHLORIDE
  5. LOVASTATIN. [Concomitant]
     Active Substance: LOVASTATIN
  6. VITAMINS WITH MINERALS [Concomitant]
     Active Substance: MINERALS\VITAMINS
  7. AMBRISENTAN [Suspect]
     Active Substance: AMBRISENTAN
     Indication: PULMONARY ARTERIAL HYPERTENSION
     Dosage: 10 MG, QD
     Route: 065
     Dates: start: 20081230
  8. AMBRISENTAN [Suspect]
     Active Substance: AMBRISENTAN
     Indication: COR PULMONALE
  9. ASPIRIN                            /00002701/ [Concomitant]
     Active Substance: ASPIRIN
  10. CYANOCOBALAMIN. [Concomitant]
     Active Substance: CYANOCOBALAMIN
  11. HYDROCODONE BITARTRATE AND ACETAMINOPHEN [Concomitant]
     Active Substance: ACETAMINOPHEN\HYDROCODONE BITARTRATE
  12. BUMETANIDE. [Concomitant]
     Active Substance: BUMETANIDE
  13. MUCINEX [Concomitant]
     Active Substance: GUAIFENESIN
  14. CIPRO [Concomitant]
     Active Substance: CIPROFLOXACIN HYDROCHLORIDE
  15. IRON [Concomitant]
     Active Substance: IRON
  16. GLUCOSAMINE W/CHONDROITIN [Concomitant]
     Active Substance: CHONDROITIN SULFATE A\GLUCOSAMINE
  17. HUMALOG [Concomitant]
     Active Substance: INSULIN LISPRO
  18. DILTIAZEM. [Concomitant]
     Active Substance: DILTIAZEM
  19. ZOLOFT [Concomitant]
     Active Substance: SERTRALINE HYDROCHLORIDE
  20. LEVOFLOXACIN. [Concomitant]
     Active Substance: LEVOFLOXACIN
  21. OXYCODONE [Concomitant]
     Active Substance: OXYCODONE
  22. IPRATROPIUM/ALBUTEROL [Concomitant]
     Active Substance: ALBUTEROL\IPRATROPIUM
  23. LANTUS [Concomitant]
     Active Substance: INSULIN GLARGINE
  24. REVATIO [Concomitant]
     Active Substance: SILDENAFIL CITRATE
  25. FE                                 /00023514/ [Concomitant]
  26. AROMASIN [Concomitant]
     Active Substance: EXEMESTANE

REACTIONS (5)
  - Sepsis [Recovered/Resolved]
  - Urinary tract infection [Recovered/Resolved]
  - Cholelithiasis [Recovering/Resolving]
  - Dehydration [Recovered/Resolved]
  - Acute kidney injury [Recovered/Resolved]

NARRATIVE: CASE EVENT DATE: 20180413
